FAERS Safety Report 14187873 (Version 1)
Quarter: 2017Q4

REPORT INFORMATION
  Report Type: Spontaneous
  Country: GB (occurrence: GB)
  Receive Date: 20171114
  Receipt Date: 20171114
  Transmission Date: 20180321
  Serious: Yes (Other)
  Sender: FDA-Public Use
  Company Number: GB-BAUSCH-BL-2017-031059

PATIENT
  Sex: Male

DRUGS (3)
  1. MORPHINE [Concomitant]
     Active Substance: MORPHINE
     Indication: PRODUCT USED FOR UNKNOWN INDICATION
  2. XTANDI [Interacting]
     Active Substance: ENZALUTAMIDE
     Indication: PROSTATE CANCER METASTATIC
     Route: 065
     Dates: start: 201612
  3. DEXAMETHASONE. [Suspect]
     Active Substance: DEXAMETHASONE
     Indication: NEOPLASM MALIGNANT
     Dosage: 40 DOSES
     Route: 065

REACTIONS (12)
  - Drug interaction [Unknown]
  - Drug ineffective [Unknown]
  - Bone cancer [Unknown]
  - Renal pain [Unknown]
  - Neoplasm malignant [Unknown]
  - Nodule [Unknown]
  - Renal neoplasm [Unknown]
  - Prostatic specific antigen increased [Unknown]
  - Musculoskeletal chest pain [Unknown]
  - Inflammation [Unknown]
  - Bone pain [Unknown]
  - Asthenia [Unknown]
